FAERS Safety Report 9668169 (Version 2)
Quarter: 2014Q1

REPORT INFORMATION
  Report Type: Spontaneous
  Country: GB (occurrence: None)
  Receive Date: 20131101
  Receipt Date: 20140204
  Transmission Date: 20141002
  Serious: Yes (Death, Other)
  Sender: FDA-Public Use
  Company Number: AUR-APL-2013-08986

PATIENT
  Age: 83 Year
  Sex: Female
  Weight: 50.6 kg

DRUGS (22)
  1. CLOPIDOGREL [Suspect]
     Indication: CAROTID ARTERY STENOSIS
     Dosage: 75 MG, 1 IN 1 D
     Route: 048
     Dates: start: 20130415, end: 20130503
  2. PRADAXA (DABIGATRAN ETEXILATE MESILATE) [Suspect]
     Indication: PRODUCT USED FOR UNKNOWN INDICATION
     Dosage: 110 MG, 2 IN 1 D
     Route: 048
     Dates: start: 20130419, end: 20130503
  3. ADCAL-D3 (LEKOVIT CA) [Concomitant]
  4. ALENDRONATE (ALENDRONATE SODIUM) [Concomitant]
  5. AMLODIPINE (AMLODIPINE) [Concomitant]
  6. ATORVASTATIN (ATORVASTATIN) [Concomitant]
  7. BENDROFLUMETHIAZIDE (BENDROFLUMETHIAZIDE) [Concomitant]
  8. CITALOPRAM (CITALOPRAM) [Concomitant]
  9. CYCLIZINE (CYCLIZINE) [Concomitant]
  10. LACTULOSE (LACTULOSE) [Concomitant]
  11. LANSOPRAZOLE (LANSOPRAZOLE) [Concomitant]
  12. LAXIDO (ELECTROLYTES NOS W/MACROGOL 3350) [Concomitant]
  13. MAGNESIUM GLYCEROPHOSPHATE (MAGNESIUM GLYCEROPHOSPHATE) [Concomitant]
  14. MICROLAX (MICROLAX) [Concomitant]
  15. OMEPRAZOLE (OMEPRAZOLE) [Concomitant]
  16. PREDNISOLONE (PREDNISOLONE) [Concomitant]
  17. RAMIPRIL (RAMIPRIL) [Concomitant]
  18. RANITIDINE (RANITIDINE) [Concomitant]
  19. SIMVASTATIN (SIMVASTATIN) [Concomitant]
  20. TOLTERODINE (TOLTERODINE) [Concomitant]
  21. TRAMADOL (TRAMADOL) [Concomitant]
  22. TRIMETHOPRIM (TRIMETHOPRIM) [Concomitant]

REACTIONS (3)
  - Gastrointestinal haemorrhage [None]
  - Malaise [None]
  - Sepsis [None]
